FAERS Safety Report 11277610 (Version 3)
Quarter: 2015Q3

REPORT INFORMATION
  Report Type: Spontaneous
  Country: US (occurrence: US)
  Receive Date: 20150716
  Receipt Date: 20150904
  Transmission Date: 20151125
  Serious: Yes (Death, Hospitalization)
  Sender: FDA-Public Use
  Company Number: US-INCYTE CORPORATION-2015IN003292

PATIENT
  Age: 69 Year
  Sex: Female
  Weight: 63.6 kg

DRUGS (9)
  1. COUMADIN [Concomitant]
     Active Substance: WARFARIN SODIUM
     Dosage: UNK
     Dates: end: 20150626
  2. JAKAFI [Suspect]
     Active Substance: RUXOLITINIB
     Dosage: 25 MG, BID
     Route: 048
     Dates: end: 20150707
  3. B COMPLEX                          /00212701/ [Concomitant]
     Dosage: 1 TABLET DAILY
     Route: 048
  4. PREDNISONE                         /00044702/ [Concomitant]
     Active Substance: PREDNISONE
     Dosage: 10 MG, QD AFTER A MEAL
     Route: 048
  5. JAKAFI [Suspect]
     Active Substance: RUXOLITINIB
     Dosage: 25 MG, BID
     Route: 048
     Dates: start: 2015
  6. JAKAFI [Suspect]
     Active Substance: RUXOLITINIB
     Indication: MYELOFIBROSIS
     Dosage: 25 MG AM AND 12.5 MG PM
     Route: 048
     Dates: start: 20131213
  7. CITALOPRAM [Concomitant]
     Active Substance: CITALOPRAM HYDROBROMIDE
     Dosage: 40 MG, QD
     Route: 048
  8. OXYCODONE AND ACETAMINOPHEN [Concomitant]
     Active Substance: ACETAMINOPHEN\OXYCODONE\OXYCODONE HYDROCHLORIDE
     Indication: PAIN
     Dosage: 10-325 MG EVERY 4 HOURS
     Route: 048
  9. FENTANYL. [Concomitant]
     Active Substance: FENTANYL
     Dosage: 25 MCG/HR EVERY 72 HOURS
     Route: 062

REACTIONS (18)
  - Thrombocytopenia [Not Recovered/Not Resolved]
  - Metabolic acidosis [Unknown]
  - Respiratory failure [Unknown]
  - Deep vein thrombosis [Unknown]
  - Portal vein thrombosis [Unknown]
  - White blood cell count increased [Unknown]
  - Anaemia [Not Recovered/Not Resolved]
  - Sepsis [Unknown]
  - Wrong technique in product usage process [Unknown]
  - Budd-Chiari syndrome [Unknown]
  - Hypertension [Unknown]
  - Abdominal distension [Unknown]
  - Death [Fatal]
  - Cellulitis [Unknown]
  - Abscess limb [Unknown]
  - Peripheral swelling [Not Recovered/Not Resolved]
  - Acute kidney injury [Unknown]
  - Weight increased [Unknown]

NARRATIVE: CASE EVENT DATE: 20131213
